FAERS Safety Report 5690903-2 (Version None)
Quarter: 2008Q2

REPORT INFORMATION
  Report Type: 
  Country: None (occurrence: None)
  Receive Date: 20080401
  Receipt Date: 20080326
  Transmission Date: 20081010
  Serious: Yes (Other)
  Sender: FDA-Public Use
  Company Number: US-ASTRAZENECA-2008UW00663

PATIENT
  Age: 44 Year
  Sex: Male
  Weight: 117.3 kg

DRUGS (11)
  1. SEROQUEL [Suspect]
     Indication: MENTAL DISORDER
     Route: 048
     Dates: start: 20030101, end: 20070701
  2. SEROQUEL [Suspect]
     Dosage: VARIOUS DOSES
     Route: 048
     Dates: start: 20030101, end: 20070701
  3. DEPAKOTE [Concomitant]
     Dates: start: 20070101
  4. TRAZODONE HCL [Concomitant]
     Dates: start: 20030101
  5. LOXAPINE [Concomitant]
     Dates: start: 20070101
  6. HALDOL [Concomitant]
     Dates: end: 20060801
  7. RISPERDAL [Concomitant]
     Dates: end: 20070501
  8. THORAZINE [Concomitant]
     Dates: end: 19800101
  9. ZYPREXA [Concomitant]
     Dates: end: 20020101
  10. PROLIXIN [Concomitant]
  11. GEODON [Concomitant]
     Dosage: 2007

REACTIONS (5)
  - BLOOD TRIGLYCERIDES INCREASED [None]
  - CARDIAC DISORDER [None]
  - DIABETES MELLITUS [None]
  - HYPERTENSION [None]
  - PNEUMONIA [None]
